FAERS Safety Report 12500901 (Version 1)
Quarter: 2016Q2

REPORT INFORMATION
  Report Type: Spontaneous
  Country: CZ (occurrence: CZ)
  Receive Date: 20160627
  Receipt Date: 20160627
  Transmission Date: 20160815
  Serious: Yes (Death)
  Sender: FDA-Public Use
  Company Number: CZ-JNJFOC-20160622106

PATIENT
  Age: 5 Decade
  Sex: Male

DRUGS (1)
  1. DARZALEX [Suspect]
     Active Substance: DARATUMUMAB
     Indication: PLASMA CELL MYELOMA
     Dosage: A TOTAL OF 3 DOSES FOR 1.5 MONTH
     Route: 042

REACTIONS (2)
  - Disease progression [Fatal]
  - Infection [Fatal]

NARRATIVE: CASE EVENT DATE: 201606
